FAERS Safety Report 7772811-6 (Version None)
Quarter: 2011Q3

REPORT INFORMATION
  Report Type: 
  Country: None (occurrence: None)
  Receive Date: 20110922
  Receipt Date: 20100915
  Transmission Date: 20111222
  Serious: No
  Sender: FDA-Public Use
  Company Number: US-ASTRAZENECA-2008UW28874

PATIENT
  Age: 39 Year
  Sex: Male
  Weight: 78 kg

DRUGS (11)
  1. KLONOPIN [Concomitant]
     Dates: start: 20020101, end: 20070101
  2. PAXIL [Concomitant]
     Dates: start: 20020101
  3. SEROQUEL [Suspect]
     Indication: INSOMNIA
     Route: 048
     Dates: start: 19990101
  4. SEROQUEL [Suspect]
     Route: 048
     Dates: start: 20000803
  5. SEROQUEL [Suspect]
     Indication: BIPOLAR DISORDER
     Route: 048
     Dates: start: 19990101
  6. ALPRAZOLAM [Concomitant]
     Dates: start: 20070101, end: 20080101
  7. SEROQUEL [Suspect]
     Route: 048
     Dates: start: 20000803
  8. DEPAKOTE [Concomitant]
     Dates: start: 20060101, end: 20080101
  9. SEROQUEL [Suspect]
     Indication: DEPRESSION
     Route: 048
     Dates: start: 19990101
  10. SEROQUEL [Suspect]
     Route: 048
     Dates: start: 20000803
  11. CYMBALTA [Concomitant]
     Dates: start: 20090101

REACTIONS (5)
  - TYPE 2 DIABETES MELLITUS [None]
  - HYPERLIPIDAEMIA [None]
  - HEPATITIS C [None]
  - WOUND INFECTION [None]
  - BLOOD CHOLESTEROL INCREASED [None]
